FAERS Safety Report 7624334-2 (Version None)
Quarter: 2011Q3

REPORT INFORMATION
  Report Type: 
  Country: None (occurrence: None)
  Receive Date: 20110720
  Receipt Date: 20110715
  Transmission Date: 20111222
  Serious: Yes (Death, Other)
  Sender: FDA-Public Use
  Company Number: US-PFIZER INC-2011160942

PATIENT
  Sex: Male

DRUGS (1)
  1. CHANTIX [Suspect]
     Dosage: UNK
     Dates: start: 20081101

REACTIONS (7)
  - ANXIETY [None]
  - DEPRESSION [None]
  - IRRITABILITY [None]
  - SLEEP TERROR [None]
  - FATIGUE [None]
  - COMPLETED SUICIDE [None]
  - SOCIAL AVOIDANT BEHAVIOUR [None]
